FAERS Safety Report 13373743 (Version 1)
Quarter: 2017Q1

REPORT INFORMATION
  Report Type: Spontaneous
  Country: US (occurrence: US)
  Receive Date: 20170327
  Receipt Date: 20170327
  Transmission Date: 20170429
  Serious: No
  Sender: FDA-Public Use
  Company Number: None

PATIENT
  Age: 41 Year
  Sex: Male
  Weight: 80.1 kg

DRUGS (5)
  1. OMEGA 3 FISH OIL [Concomitant]
     Active Substance: FISH OIL\OMEGA-3 FATTY ACIDS
  2. MULTIVITAMIN/MULTIMINERAL [Concomitant]
     Active Substance: MINERALS\VITAMINS
  3. VITAMIN C [Concomitant]
     Active Substance: ASCORBIC ACID
  4. SMART SENSE ATHLETES FOOT ANTIFUNGAL [Suspect]
     Active Substance: CLOTRIMAZOLE
     Indication: ANTIFUNGAL TREATMENT
     Dosage: ?          QUANTITY:1 OUNCE(S);?
     Route: 061
     Dates: start: 20170320, end: 20170326
  5. GINSENG ROOT EXTRACT [Concomitant]

REACTIONS (4)
  - Pruritus [None]
  - Product quality issue [None]
  - Erythema [None]
  - Parosmia [None]

NARRATIVE: CASE EVENT DATE: 20170320
